FAERS Safety Report 17209992 (Version 2)
Quarter: 2020Q1

REPORT INFORMATION
  Report Type: Spontaneous
  Country: GR (occurrence: GR)
  Receive Date: 20191227
  Receipt Date: 20200109
  Transmission Date: 20200409
  Serious: Yes (Other)
  Sender: FDA-Public Use
  Company Number: GR-MYLANLABS-2019M1127629

PATIENT
  Age: 70 Year
  Sex: Female

DRUGS (11)
  1. PITAVA [Interacting]
     Active Substance: PITAVASTATIN
     Indication: BLOOD CHOLESTEROL INCREASED
     Dosage: DAILY DOSE: 1MG (HALF TABLET)
     Route: 048
  2. CEFUROXIME. [Interacting]
     Active Substance: CEFUROXIME
     Indication: URINARY TRACT INFECTION
     Dosage: UNK
  3. CIPROFLOXACIN. [Suspect]
     Active Substance: CIPROFLOXACIN
     Indication: URINARY TRACT INFECTION
     Dosage: 1000 MILLIGRAM, QD
     Route: 048
  4. PITAVA [Interacting]
     Active Substance: PITAVASTATIN
     Dosage: 0.5 DOSAGE FORM, QD
     Route: 048
  5. LOSEC [Concomitant]
     Active Substance: OMEPRAZOLE
     Indication: PRODUCT USED FOR UNKNOWN INDICATION
     Dosage: 3 DOSAGE FORM, 3XW
     Route: 048
  6. MEDITHYROX [Concomitant]
     Indication: AUTOIMMUNE THYROIDITIS
     Dosage: 88 MICROGRAM, QD
     Route: 048
  7. AMOXICILLIN. [Interacting]
     Active Substance: AMOXICILLIN
     Indication: URINARY TRACT INFECTION
     Dosage: UNK
  8. FUROLIN [Interacting]
     Active Substance: NITROFURANTOIN
     Indication: URINARY TRACT INFECTION
     Dosage: 100 MILLIGRAM, QD
     Route: 048
     Dates: start: 201902, end: 201908
  9. THYROHORMONE [Concomitant]
     Active Substance: LEVOTHYROXINE SODIUM
     Indication: PRODUCT USED FOR UNKNOWN INDICATION
     Dosage: 0.1 MILLIGRAM
  10. VACCINIUM MACROCARPON [Suspect]
     Active Substance: CRANBERRY
     Indication: URINARY TRACT INFECTION
     Dosage: 1 DOSAGE FORM, QD
     Dates: end: 201908
  11. CO-DIOVAN [Concomitant]
     Active Substance: HYDROCHLOROTHIAZIDE\VALSARTAN
     Indication: PRODUCT USED FOR UNKNOWN INDICATION
     Dosage: UNK
     Route: 048

REACTIONS (5)
  - Dry mouth [Recovered/Resolved]
  - Wrong technique in product usage process [Unknown]
  - Autoimmune hepatitis [Recovering/Resolving]
  - Drug interaction [Unknown]
  - Hepatic enzyme increased [Recovering/Resolving]

NARRATIVE: CASE EVENT DATE: 20190715
